FAERS Safety Report 12214791 (Version 1)
Quarter: 2016Q1

REPORT INFORMATION
  Report Type: Spontaneous
  Country: GB (occurrence: GB)
  Receive Date: 20160328
  Receipt Date: 20160328
  Transmission Date: 20160526
  Serious: Yes (Hospitalization, Other)
  Sender: FDA-Public Use
  Company Number: GB-BAUSCH-BL-2016-006783

PATIENT
  Age: 55 Year
  Sex: Male

DRUGS (1)
  1. DEXAMETHASONE. [Suspect]
     Active Substance: DEXAMETHASONE
     Indication: PRODUCT USED FOR UNKNOWN INDICATION
     Route: 065

REACTIONS (8)
  - Blood glucose increased [Unknown]
  - Breath odour [Unknown]
  - Pollakiuria [Unknown]
  - Dyspnoea [Unknown]
  - Nausea [Unknown]
  - Thirst [Unknown]
  - Malaise [Unknown]
  - Diabetic ketoacidosis [Unknown]

NARRATIVE: CASE EVENT DATE: 20151220
